FAERS Safety Report 5484975-8 (Version None)
Quarter: 2007Q4

REPORT INFORMATION
  Report Type: 
  Country: None (occurrence: None)
  Receive Date: 20071010
  Receipt Date: 20070928
  Transmission Date: 20080405
  Serious: Yes (Hospitalization)
  Sender: FDA-Public Use
  Company Number: TCI2005A03008

PATIENT
  Age: 68 Year
  Sex: Female

DRUGS (7)
  1. ACTOS [Suspect]
     Indication: DIABETES MELLITUS
     Dosage: 7.5 MG (7.5 MG, 1 IN 1 D) PER ORAL
     Route: 048
     Dates: start: 20050603, end: 20050616
  2. SERMION (NICERGOLINE) [Concomitant]
  3. METHYCOBAL (MECOBALAMIN) [Concomitant]
  4. ALDACTONE [Concomitant]
  5. DIART(AZOSEMIDE) [Concomitant]
  6. NORVASC [Concomitant]
  7. JUVELA N (TOCOPHERYL NICOTINATE) [Concomitant]

REACTIONS (6)
  - ANTI-PLATELET ANTIBODY POSITIVE [None]
  - CONDITION AGGRAVATED [None]
  - DIABETES MELLITUS [None]
  - GINGIVAL BLEEDING [None]
  - PURPURA [None]
  - THROMBOCYTOPENIC PURPURA [None]
